FAERS Safety Report 19095112 (Version 1)
Quarter: 2021Q2

REPORT INFORMATION
  Report Type: Report from Study
  Country: None (occurrence: US)
  Receive Date: 20210406
  Receipt Date: 20210406
  Transmission Date: 20210717
  Serious: Yes (Other)
  Sender: FDA-Public Use
  Company Number: US-ABBVIE-21K-163-3840258-00

PATIENT
  Age: 56 Year
  Sex: Male

DRUGS (1)
  1. HUMIRA [Suspect]
     Active Substance: ADALIMUMAB
     Indication: PSORIASIS
     Route: 058

REACTIONS (6)
  - Exostosis [Unknown]
  - Implant site pain [Unknown]
  - Weight decreased [Unknown]
  - Feeding disorder [Unknown]
  - Dental implantation [Unknown]
  - Implantation complication [Not Recovered/Not Resolved]

NARRATIVE: CASE EVENT DATE: 202101
